FAERS Safety Report 10047076 (Version 2)
Quarter: 2014Q1

REPORT INFORMATION
  Report Type: Spontaneous
  Country: US (occurrence: US)
  Receive Date: 20140331
  Receipt Date: 20140331
  Transmission Date: 20141002
  Serious: No
  Sender: FDA-Public Use
  Company Number: US-MYLANLABS-2013S1006194

PATIENT
  Age: 27 Year
  Sex: Male
  Weight: 63.5 kg

DRUGS (2)
  1. FENTANYL TRANSDERMAL SYSTEM [Suspect]
     Indication: PAIN
     Dosage: CHANGES Q 48HR
     Route: 062
     Dates: start: 201301
  2. OXYCODONE [Concomitant]
     Indication: BREAKTHROUGH PAIN

REACTIONS (3)
  - Drug effect decreased [Not Recovered/Not Resolved]
  - Pain [Not Recovered/Not Resolved]
  - Restless legs syndrome [Not Recovered/Not Resolved]
